FAERS Safety Report 9760359 (Version 1)
Quarter: 2013Q4

REPORT INFORMATION
  Report Type: Spontaneous
  Country: US (occurrence: US)
  Receive Date: 20131216
  Receipt Date: 20131216
  Transmission Date: 20140711
  Serious: No
  Sender: FDA-Public Use
  Company Number: US-GILEAD-2010-0029503

PATIENT
  Sex: Female
  Weight: 55.79 kg

DRUGS (13)
  1. LETAIRIS [Suspect]
     Indication: PULMONARY ARTERIAL HYPERTENSION
     Route: 048
     Dates: start: 20100325
  2. DOPAMINE [Concomitant]
  3. MIDODRINE [Concomitant]
  4. GLEEVEC [Concomitant]
  5. LASIX [Concomitant]
  6. POTASSIUM [Concomitant]
  7. REVATIO [Concomitant]
  8. ZOFRAN [Concomitant]
  9. FLONASE [Concomitant]
  10. COUMADIN [Concomitant]
  11. DIPHENHYDRAMINE [Concomitant]
  12. OXYGEN [Concomitant]
  13. DEPO-PROVERA [Concomitant]

REACTIONS (1)
  - Syncope [Unknown]
